FAERS Safety Report 8539898-4 (Version None)
Quarter: 2012Q2

REPORT INFORMATION
  Report Type: 
  Country: None (occurrence: None)
  Receive Date: 20120412
  Receipt Date: 20090107
  Transmission Date: 20120825
  Serious: Yes (Other)
  Sender: FDA-Public Use
  Company Number: PHEH2004US03572

PATIENT
  Age: 55 Year
  Sex: Female

DRUGS (4)
  1. NEURONTIN [Concomitant]
  2. PROCRIT [Concomitant]
  3. AREDIA [Suspect]
     Indication: BREAST CANCER METASTATIC
     Dosage: 90 MG, QMO
     Dates: start: 19990101, end: 20020101
  4. CELEXA [Concomitant]

REACTIONS (6)
  - INFECTION [None]
  - WOUND DRAINAGE [None]
  - OSTEONECROSIS [None]
  - PAIN [None]
  - SWELLING [None]
  - BONE DISORDER [None]
